FAERS Safety Report 5932102-2 (Version None)
Quarter: 2008Q4

REPORT INFORMATION
  Report Type: 
  Country: None (occurrence: None)
  Receive Date: 20081027
  Receipt Date: 20081021
  Transmission Date: 20090506
  Serious: Yes (Other)
  Sender: FDA-Public Use
  Company Number: US-JNJCH-2008052644

PATIENT
  Age: 11 Year
  Sex: Female

DRUGS (1)
  1. ZYRTEC [Suspect]
     Indication: HYPERSENSITIVITY
     Dosage: TEXT:1 TABLET ONCE
     Route: 048
     Dates: start: 20081019, end: 20081019

REACTIONS (2)
  - MUSCLE TWITCHING [None]
  - SOMNOLENCE [None]
